FAERS Safety Report 15458769 (Version 1)
Quarter: 2018Q4

REPORT INFORMATION
  Report Type: Spontaneous
  Country: ES (occurrence: ES)
  Receive Date: 20181003
  Receipt Date: 20181003
  Transmission Date: 20190204
  Serious: Yes (Other)
  Sender: FDA-Public Use
  Company Number: ES-APOTEX-2018AP021603

PATIENT
  Age: 81 Year
  Sex: Female

DRUGS (1)
  1. LOSARTAN. [Suspect]
     Active Substance: LOSARTAN
     Indication: HYPERTENSION
     Dosage: 100 MG, PER DAY
     Route: 065

REACTIONS (4)
  - Colitis microscopic [Recovered/Resolved]
  - Sprue-like enteropathy [Recovered/Resolved]
  - Dysphonia [Unknown]
  - Cough [Unknown]
